FAERS Safety Report 18022832 (Version 1)
Quarter: 2020Q3

REPORT INFORMATION
  Report Type: Spontaneous
  Country: DE (occurrence: DE)
  Receive Date: 20200715
  Receipt Date: 20200715
  Transmission Date: 20201103
  Serious: No
  Sender: FDA-Public Use
  Company Number: DE-HORMOSAN PHARMA GMBH-2020-02278

PATIENT
  Age: 44 Year
  Sex: Male

DRUGS (2)
  1. ABACAVIR/LAMIVUDINE?HORMOSAN 300 MG/600 MG FILMTABLETTEN [Suspect]
     Active Substance: ABACAVIR\LAMIVUDINE
     Indication: HIV INFECTION
     Dosage: 1 DOSAGE FORM, QD (SINCE 6 YEARS AGO IN EVENING)
     Route: 065
  2. EFAVIRENZ. [Concomitant]
     Active Substance: EFAVIRENZ
     Indication: HIV INFECTION
     Dosage: 1 DOSAGE FORM, QD (FROM 6 YEARS AGO IN EVENING)
     Route: 065

REACTIONS (8)
  - Fatigue [Unknown]
  - Muscle disorder [Unknown]
  - Back pain [Unknown]
  - Myalgia [Unknown]
  - Arthralgia [Unknown]
  - Rash [Unknown]
  - Faeces soft [Unknown]
  - Pain in extremity [Unknown]

NARRATIVE: CASE EVENT DATE: 202004
